FAERS Safety Report 7504279-9 (Version None)
Quarter: 2011Q2

REPORT INFORMATION
  Report Type: 
  Country: None (occurrence: None)
  Receive Date: 20110525
  Receipt Date: 20110520
  Transmission Date: 20111010
  Serious: Yes (Hospitalization)
  Sender: FDA-Public Use
  Company Number: US-CEPHALON-2011000627

PATIENT
  Sex: Male
  Weight: 91 kg

DRUGS (6)
  1. CITALOPRAM HYDROBROMIDE [Concomitant]
     Dates: start: 20100101
  2. PRILOSEC [Concomitant]
     Dates: start: 20090101
  3. BENDAMUSTINE HCL [Suspect]
     Indication: DIFFUSE LARGE B-CELL LYMPHOMA
     Route: 042
     Dates: start: 20101208
  4. ASPIRIN [Concomitant]
  5. RITUXAN [Suspect]
     Indication: DIFFUSE LARGE B-CELL LYMPHOMA
     Route: 042
     Dates: start: 20101208
  6. LISINOPRIL [Concomitant]
     Indication: HYPERTENSION
     Dates: start: 20100101

REACTIONS (1)
  - ATRIAL FIBRILLATION [None]
